FAERS Safety Report 8230239-9 (Version None)
Quarter: 2012Q1

REPORT INFORMATION
  Report Type: 
  Country: None (occurrence: None)
  Receive Date: 20120321
  Receipt Date: 20120321
  Transmission Date: 20120608
  Serious: No
  Sender: FDA-Public Use
  Company Number: None

PATIENT
  Age: 84 Year
  Sex: Male
  Weight: 66.7 kg

DRUGS (1)
  1. SIMVASTATIN [Suspect]
     Dosage: MG PO
     Dates: start: 20110127, end: 20110831

REACTIONS (1)
  - LUNG INFILTRATION [None]
